FAERS Safety Report 8406978-3 (Version None)
Quarter: 2012Q2

REPORT INFORMATION
  Report Type: 
  Country: None (occurrence: None)
  Receive Date: 20120604
  Receipt Date: 20120530
  Transmission Date: 20120825
  Serious: Yes (Other)
  Sender: FDA-Public Use
  Company Number: US-AMGEN-USASP2011070027

PATIENT
  Sex: Male
  Weight: 2.608 kg

DRUGS (12)
  1. NASONEX [Concomitant]
     Indication: COUGH
     Dosage: UNK UNK, QD
     Route: 064
     Dates: start: 20110420
  2. NASONEX [Concomitant]
     Dosage: UNK UNK, QD
     Route: 064
     Dates: start: 20110321
  3. ENBREL [Suspect]
     Dosage: 50 MG, QWK
     Route: 064
     Dates: start: 20040601, end: 20110223
  4. ENBREL [Suspect]
     Dosage: UNK UNK, QWK
     Route: 064
     Dates: start: 20111001
  5. ENBREL [Suspect]
     Dosage: UNK, QWK
     Dates: start: 20040101, end: 20110401
  6. TYLENOL W/ CODEINE [Concomitant]
     Dosage: UNK UNK, PRN
     Route: 064
     Dates: start: 20110615
  7. RENATA [Concomitant]
     Dosage: UNK UNK, QD
     Route: 064
     Dates: start: 20110223
  8. MUCINEX [Concomitant]
     Dosage: UNK UNK, PRN
     Route: 064
  9. ZANTAC [Concomitant]
     Indication: COUGH
     Dosage: UNK UNK, ONE TIME DOSE
     Route: 064
     Dates: start: 20110420
  10. PRENATAL VITAMINS                  /01549301/ [Concomitant]
     Dosage: UNK
     Route: 064
  11. PREDNISONE [Concomitant]
     Indication: COUGH
     Dosage: 40 MG, UNK
     Route: 064
     Dates: start: 20110420, end: 20110510
  12. BENADRYL [Concomitant]
     Indication: COUGH
     Dosage: UNK
     Route: 064
     Dates: start: 20110420

REACTIONS (2)
  - INGUINAL HERNIA [None]
  - PREMATURE BABY [None]
